FAERS Safety Report 22241915 (Version 2)
Quarter: 2023Q2

REPORT INFORMATION
  Report Type: Report from Study
  Country: US (occurrence: US)
  Receive Date: 20230421
  Receipt Date: 20230503
  Transmission Date: 20230721
  Serious: No
  Sender: FDA-Public Use
  Company Number: US-002147023-NVSC2023US090124

PATIENT
  Sex: Female

DRUGS (1)
  1. FINGOLIMOD [Suspect]
     Active Substance: FINGOLIMOD
     Indication: Product used for unknown indication
     Dosage: UNK
     Route: 065

REACTIONS (10)
  - Hair growth abnormal [Unknown]
  - Hypoaesthesia [Unknown]
  - Balance disorder [Unknown]
  - Hot flush [Unknown]
  - Temperature intolerance [Unknown]
  - Brain fog [Unknown]
  - Paraesthesia [Unknown]
  - Alopecia [Unknown]
  - Fatigue [Unknown]
  - Drug ineffective [Unknown]
